FAERS Safety Report 4395580-9 (Version None)
Quarter: 2004Q3

REPORT INFORMATION
  Report Type: 
  Country: None (occurrence: None)
  Receive Date: 20040708
  Receipt Date: 20040623
  Transmission Date: 20050211
  Serious: Yes (Hospitalization)
  Sender: FDA-Public Use
  Company Number: 173941

PATIENT
  Age: 60 Year
  Sex: Female

DRUGS (2)
  1. AVONEX [Suspect]
     Indication: MULTIPLE SCLEROSIS
     Dates: start: 20020429, end: 20030401
  2. AVONEX [Suspect]
     Indication: MULTIPLE SCLEROSIS
     Dates: start: 20030501

REACTIONS (4)
  - COLITIS ISCHAEMIC [None]
  - DEHYDRATION [None]
  - RECTAL HAEMORRHAGE [None]
  - WHITE BLOOD CELL COUNT INCREASED [None]
